FAERS Safety Report 16417192 (Version 3)
Quarter: 2019Q4

REPORT INFORMATION
  Report Type: Spontaneous
  Country: US (occurrence: US)
  Receive Date: 20190611
  Receipt Date: 20191007
  Transmission Date: 20200122
  Serious: No
  Sender: FDA-Public Use
  Company Number: US-PFIZER INC-2019247057

PATIENT
  Age: 75 Year
  Sex: Female

DRUGS (2)
  1. GABAPENTIN. [Suspect]
     Active Substance: GABAPENTIN
     Indication: PARAESTHESIA
  2. GABAPENTIN. [Suspect]
     Active Substance: GABAPENTIN
     Indication: PAIN IN EXTREMITY
     Dosage: UNK

REACTIONS (6)
  - Drug hypersensitivity [Unknown]
  - Vomiting [Unknown]
  - Nausea [Unknown]
  - Product use in unapproved indication [Unknown]
  - Malaise [Unknown]
  - Off label use [Unknown]
